FAERS Safety Report 18084949 (Version 1)
Quarter: 2020Q3

REPORT INFORMATION
  Report Type: Spontaneous
  Country: US (occurrence: US)
  Receive Date: 20200729
  Receipt Date: 20200729
  Transmission Date: 20201103
  Serious: No
  Sender: FDA-Public Use
  Company Number: US-ALKEM LABORATORIES LIMITED-US-ALKEM-2020-00291

PATIENT
  Sex: Female

DRUGS (1)
  1. CEFUROXIME AXETIL. [Suspect]
     Active Substance: CEFUROXIME AXETIL
     Indication: PRODUCT USED FOR UNKNOWN INDICATION
     Dosage: UNKNOWN
     Route: 065
     Dates: start: 20200127

REACTIONS (5)
  - Erythema [Recovered/Resolved]
  - Heart rate irregular [Unknown]
  - Heart rate increased [Recovered/Resolved]
  - Extrasystoles [Unknown]
  - Insomnia [Unknown]

NARRATIVE: CASE EVENT DATE: 20200127
